FAERS Safety Report 13477463 (Version 1)
Quarter: 2017Q2

REPORT INFORMATION
  Report Type: Spontaneous
  Country: SA (occurrence: US)
  Receive Date: 20170425
  Receipt Date: 20170425
  Transmission Date: 20170830
  Serious: Yes (Other)
  Sender: FDA-Public Use
  Company Number: None

PATIENT
  Age: 86 Year
  Sex: Female
  Weight: 56.6 kg

DRUGS (1)
  1. LINEZOLID. [Suspect]
     Active Substance: LINEZOLID
     Route: 042
     Dates: start: 20160322, end: 20160322

REACTIONS (4)
  - International normalised ratio increased [None]
  - Haemorrhage [None]
  - Urinary tract infection enterococcal [None]
  - Facial paralysis [None]

NARRATIVE: CASE EVENT DATE: 20160322
